FAERS Safety Report 4447929-6 (Version None)
Quarter: 2004Q3

REPORT INFORMATION
  Report Type: 
  Country: None (occurrence: None)
  Receive Date: 20040913
  Receipt Date: 20040720
  Transmission Date: 20050211
  Serious: Yes (Other)
  Sender: FDA-Public Use
  Company Number: US-ROCHE-375081

PATIENT
  Age: 61 Year
  Sex: Male
  Weight: 90.7 kg

DRUGS (6)
  1. PEGASYS [Suspect]
     Indication: HEPATITIS C
     Route: 058
     Dates: start: 20040622, end: 20040715
  2. PEGASYS [Suspect]
     Route: 058
     Dates: start: 20040715
  3. PEGASYS [Suspect]
     Route: 058
     Dates: start: 20040729
  4. PEGASYS [Suspect]
     Route: 058
     Dates: start: 20040903
  5. REBETOL [Concomitant]
     Indication: HEPATITIS C
     Dates: start: 20040622
  6. XANAX [Concomitant]

REACTIONS (15)
  - HYPOAESTHESIA [None]
  - INJECTION SITE DERMATITIS [None]
  - INJECTION SITE ERYTHEMA [None]
  - INJECTION SITE HAEMORRHAGE [None]
  - INJECTION SITE INFLAMMATION [None]
  - LYMPHOCYTE COUNT DECREASED [None]
  - MEAN CELL HAEMOGLOBIN CONCENTRATION INCREASED [None]
  - MEAN CELL HAEMOGLOBIN INCREASED [None]
  - MEAN CELL VOLUME [None]
  - MONOCYTE PERCENTAGE INCREASED [None]
  - NEUTROPHIL COUNT DECREASED [None]
  - RED BLOOD CELL COUNT DECREASED [None]
  - SKIN WRINKLING [None]
  - TINNITUS [None]
  - WHITE BLOOD CELL COUNT DECREASED [None]
